FAERS Safety Report 18998600 (Version 1)
Quarter: 2021Q1

REPORT INFORMATION
  Report Type: Spontaneous
  Country: US (occurrence: US)
  Receive Date: 20210312
  Receipt Date: 20210312
  Transmission Date: 20210420
  Serious: No
  Sender: FDA-Public Use
  Company Number: US-COREPHARMA LLC-2107892

PATIENT
  Age: 65 Year
  Sex: Female

DRUGS (2)
  1. LISINOPRIL. [Suspect]
     Active Substance: LISINOPRIL
     Indication: TYPE 2 DIABETES MELLITUS
     Route: 065
     Dates: end: 2020
  2. BOSENTAN. [Concomitant]
     Active Substance: BOSENTAN
     Route: 065

REACTIONS (2)
  - Product use in unapproved indication [Unknown]
  - Paraesthesia [Unknown]
